FAERS Safety Report 21137925 (Version 1)
Quarter: 2022Q3

REPORT INFORMATION
  Report Type: Spontaneous
  Country: US (occurrence: US)
  Receive Date: 20220727
  Receipt Date: 20220727
  Transmission Date: 20221027
  Serious: Yes (Other)
  Sender: FDA-Public Use
  Company Number: US-PFIZER INC-202201000529

PATIENT
  Age: 86 Year
  Sex: Female

DRUGS (1)
  1. VYNDAMAX [Suspect]
     Active Substance: TAFAMIDIS
     Indication: Cardiac amyloidosis
     Dosage: 61 MG, DAILY

REACTIONS (6)
  - Mental status changes [Not Recovered/Not Resolved]
  - Dysphagia [Not Recovered/Not Resolved]
  - Acute kidney injury [Unknown]
  - Skin ulcer [Unknown]
  - Infection [Unknown]
  - Lymphoedema [Unknown]
